FAERS Safety Report 14074410 (Version 1)
Quarter: 2017Q4

REPORT INFORMATION
  Report Type: Spontaneous
  Country: US (occurrence: None)
  Receive Date: 20171011
  Receipt Date: 20171011
  Transmission Date: 20180321
  Serious: Yes (Death)
  Sender: FDA-Public Use
  Company Number: None

PATIENT
  Age: 73 Year
  Sex: Male

DRUGS (8)
  1. TAMSULOSIN [Concomitant]
     Active Substance: TAMSULOSIN
  2. QUETIAPINE. [Concomitant]
     Active Substance: QUETIAPINE
  3. FAMOTIDINE. [Concomitant]
     Active Substance: FAMOTIDINE
  4. TETRABENAZINE. [Suspect]
     Active Substance: TETRABENAZINE
     Indication: CHRONIC MYELOID LEUKAEMIA
     Route: 048
     Dates: start: 20170808
  5. METOPROLOL. [Concomitant]
     Active Substance: METOPROLOL
  6. FINASTERIDE. [Concomitant]
     Active Substance: FINASTERIDE
  7. SERTRALINE [Concomitant]
     Active Substance: SERTRALINE HYDROCHLORIDE
  8. ATORVASTATIN [Concomitant]
     Active Substance: ATORVASTATIN

REACTIONS (1)
  - Death [None]

NARRATIVE: CASE EVENT DATE: 20170928
